FAERS Safety Report 4312375-2 (Version None)
Quarter: 2004Q1

REPORT INFORMATION
  Report Type: 
  Country: None (occurrence: None)
  Receive Date: 20040303
  Receipt Date: 20040219
  Transmission Date: 20041129
  Serious: Yes (Hospitalization)
  Sender: FDA-Public Use
  Company Number: 2004198503FR

PATIENT
  Age: 45 Year
  Sex: Female

DRUGS (3)
  1. NICORETTE [Suspect]
     Indication: SMOKING CESSATION THERAPY
     Dosage: 3-4 CARTONS, QD, RESPIRATORY
     Route: 055
     Dates: start: 20030901, end: 20040206
  2. LEXOMIL [Concomitant]
  3. ASPIRIN [Concomitant]

REACTIONS (1)
  - ANGIONEUROTIC OEDEMA [None]
